FAERS Safety Report 17415683 (Version 4)
Quarter: 2020Q1

REPORT INFORMATION
  Report Type: Spontaneous
  Country: PL (occurrence: PL)
  Receive Date: 20200213
  Receipt Date: 20200325
  Transmission Date: 20200409
  Serious: Yes (Disabling)
  Sender: FDA-Public Use
  Company Number: NVSC2019PL034041

PATIENT
  Age: 68 Year
  Sex: Male

DRUGS (16)
  1. TORASEMIDE [Suspect]
     Active Substance: TORSEMIDE
     Indication: PRODUCT USED FOR UNKNOWN INDICATION
     Dosage: 20 MG, QD
     Route: 065
  2. EPLERENONE. [Suspect]
     Active Substance: EPLERENONE
     Indication: PRODUCT USED FOR UNKNOWN INDICATION
     Dosage: MORNING
     Route: 065
  3. CARVEDILOL. [Suspect]
     Active Substance: CARVEDILOL
     Indication: PRODUCT USED FOR UNKNOWN INDICATION
     Dosage: 25 MG, QD (1X PER DAY )MORNING
     Route: 048
  4. MAGNESIUM CITRATE. [Suspect]
     Active Substance: MAGNESIUM CITRATE
     Indication: PRODUCT USED FOR UNKNOWN INDICATION
     Dosage: 1 DF, 1X PER DAY, (MORNING)
     Route: 065
  5. POTASSIUM [Suspect]
     Active Substance: POTASSIUM
     Dosage: IN THE MORNING AND IN THE EVENING
     Route: 065
  6. CARVEDILOL. [Suspect]
     Active Substance: CARVEDILOL
     Dosage: 12.5 MG, 2X PER DAY, (MORNING AND EVENING)
     Route: 065
  7. RAMIPRIL. [Suspect]
     Active Substance: RAMIPRIL
     Indication: PRODUCT USED FOR UNKNOWN INDICATION
     Dosage: 10 MG, 1X PER DAY, (IN  MORNING),
     Route: 048
  8. FUROSEMIDE. [Suspect]
     Active Substance: FUROSEMIDE
     Indication: HYPERTENSION
     Dosage: IN THE MORNING AND AFTER NOON
     Route: 065
  9. MAGNESIUM CITRATE. [Suspect]
     Active Substance: MAGNESIUM CITRATE
     Dosage: 1 DF, 1X PER DAY, (MORNING)
     Route: 065
  10. POTASSIUM [Suspect]
     Active Substance: POTASSIUM
     Dosage: 1 DF, 2X PER DAY, (IN THE MORNING AND IN THE EVENING)
     Route: 065
  11. FUROSEMIDE. [Suspect]
     Active Substance: FUROSEMIDE
     Indication: CARDIAC FAILURE
     Dosage: 40 MG, 2X PER DAY, (IN THE MORNING AND AFTER NOON)
     Route: 065
  12. ROSUVASTATIN. [Suspect]
     Active Substance: ROSUVASTATIN
     Indication: PRODUCT USED FOR UNKNOWN INDICATION
     Dosage: 20 MG, 1X PER DAY, (EVENING)
     Route: 048
  13. TORASEMIDE [Suspect]
     Active Substance: TORSEMIDE
     Dosage: 10 MG, QD
     Route: 065
  14. EPLERENONE. [Suspect]
     Active Substance: EPLERENONE
     Dosage: 25 MG, 1X PER DAY, (MORNING)
     Route: 065
  15. CARVEDILOL. [Suspect]
     Active Substance: CARVEDILOL
     Dosage: 12.5 MG, 2X PER DAY, (MORNING AND EVENING)
     Route: 065
  16. POTASSIUM [Suspect]
     Active Substance: POTASSIUM
     Indication: PRODUCT USED FOR UNKNOWN INDICATION
     Dosage: 1 DF, BID X PER DAY(IN THE MORNING AND EVENING)
     Route: 048

REACTIONS (8)
  - Cardiac failure [Unknown]
  - Dyspnoea [Unknown]
  - Peripheral swelling [Unknown]
  - Fatigue [Unknown]
  - Blood pressure inadequately controlled [Unknown]
  - Urine output increased [Unknown]
  - Micturition urgency [Unknown]
  - Drug ineffective [Unknown]
